FAERS Safety Report 4622518-9 (Version None)
Quarter: 2005Q1

REPORT INFORMATION
  Report Type: 
  Country: None (occurrence: None)
  Receive Date: 20050317
  Receipt Date: 20040519
  Transmission Date: 20050727
  Serious: Yes (Other)
  Sender: FDA-Public Use
  Company Number: PHEH2004US05585

PATIENT
  Age: 36 Year
  Sex: Male

DRUGS (1)
  1. TRILEPTAL [Suspect]
     Indication: EPILEPSY
     Dosage: 450 MG, BID, ORAL
     Route: 048
     Dates: start: 20030701, end: 20040517

REACTIONS (3)
  - FEELING ABNORMAL [None]
  - HYPONATRAEMIA [None]
  - SOMNOLENCE [None]
